FAERS Safety Report 7772179-5 (Version None)
Quarter: 2011Q3

REPORT INFORMATION
  Report Type: 
  Country: None (occurrence: None)
  Receive Date: 20110922
  Receipt Date: 20110422
  Transmission Date: 20111222
  Serious: No
  Sender: FDA-Public Use
  Company Number: US-ASTRAZENECA-2011SE23362

PATIENT
  Age: 18 Year
  Sex: Male
  Weight: 72.6 kg

DRUGS (2)
  1. DEPAKOTE [Concomitant]
  2. SEROQUEL XR [Suspect]
     Indication: BIPOLAR II DISORDER
     Route: 048
     Dates: start: 20070101

REACTIONS (2)
  - DRUG DOSE OMISSION [None]
  - INSOMNIA [None]
